FAERS Safety Report 11016377 (Version 2)
Quarter: 2015Q2

REPORT INFORMATION
  Report Type: Spontaneous
  Country: US (occurrence: US)
  Receive Date: 20150412
  Receipt Date: 20150525
  Transmission Date: 20150821
  Serious: No
  Sender: FDA-Public Use
  Company Number: US-JNJFOC-20130403017

PATIENT
  Age: 8 Year
  Sex: Female

DRUGS (3)
  1. SIMPONI [Suspect]
     Active Substance: GOLIMUMAB
     Indication: INFLAMMATION
     Route: 058
  2. SIMPONI [Suspect]
     Active Substance: GOLIMUMAB
     Indication: PYOGENIC STERILE ARTHRITIS PYODERMA GANGRENOSUM AND ACNE SYNDROME
     Route: 058
  3. ANAKINRA [Concomitant]
     Active Substance: ANAKINRA
     Indication: INFLAMMATION
     Route: 065

REACTIONS (3)
  - Injection site bruising [Unknown]
  - Device malfunction [Unknown]
  - Off label use [Unknown]

NARRATIVE: CASE EVENT DATE: 20130404
